FAERS Safety Report 4884410-4 (Version None)
Quarter: 2006Q1

REPORT INFORMATION
  Report Type: 
  Country: None (occurrence: None)
  Receive Date: 20060117
  Receipt Date: 20060106
  Transmission Date: 20060701
  Serious: Yes (Hospitalization, Other)
  Sender: FDA-Public Use
  Company Number: KII-2006-0020623

PATIENT
  Age: 60 Year
  Sex: Female

DRUGS (5)
  1. MORPHINE SULFATE [Suspect]
     Indication: INTENTIONAL DRUG MISUSE
     Dosage: ORAL
     Route: 048
  2. BENZODIAZEPINE DERIVATIVES() [Suspect]
     Indication: DRUG USE FOR UNKNOWN INDICATION
  3. LISINOPRIL [Concomitant]
  4. SERUMLIPIDREDUCING AGENTS [Concomitant]
  5. ORAL ANTIDIABETICS [Concomitant]

REACTIONS (8)
  - BLOOD PRESSURE DIASTOLIC DECREASED [None]
  - BODY TEMPERATURE INCREASED [None]
  - DISORIENTATION [None]
  - DRUG ABUSER [None]
  - LETHARGY [None]
  - NAUSEA [None]
  - RENAL IMPAIRMENT [None]
  - SOMNOLENCE [None]
